FAERS Safety Report 10039270 (Version 1)
Quarter: 2014Q1

REPORT INFORMATION
  Report Type: Spontaneous
  Country: IT (occurrence: IT)
  Receive Date: 20140326
  Receipt Date: 20140326
  Transmission Date: 20141002
  Serious: Yes (Hospitalization)
  Sender: FDA-Public Use
  Company Number: IT-TEVA-469196ISR

PATIENT
  Age: 46 Year
  Sex: Female

DRUGS (8)
  1. ENALAPRIL [Suspect]
     Indication: PRODUCT USED FOR UNKNOWN INDICATION
     Dosage: 100 MILLIGRAM DAILY;
     Route: 048
     Dates: start: 20130304, end: 20130304
  2. CITALOPRAM [Suspect]
     Indication: PRODUCT USED FOR UNKNOWN INDICATION
     Dosage: 15 ML DAILY;
     Route: 048
     Dates: start: 20130304, end: 20130304
  3. TORA-DOL - 20 MG/ML GOCCE ORALI, SOLUZIONE [Suspect]
     Indication: PRODUCT USED FOR UNKNOWN INDICATION
     Dosage: 20 ML DAILY;
     Route: 048
     Dates: start: 20130304, end: 20130304
  4. TRITTICO - 25 MG/ML GOCCE ORALI, SOLUZIONE [Suspect]
     Indication: PRODUCT USED FOR UNKNOWN INDICATION
     Dosage: 30 ML DAILY;
     Route: 048
     Dates: start: 20130304, end: 20130304
  5. PARACODINA - 10,25 MG/ML GOCCE ORALI, SOLUZIONE [Suspect]
     Indication: PRODUCT USED FOR UNKNOWN INDICATION
     Dosage: 15 GRAM DAILY;
     Route: 048
     Dates: start: 20130304, end: 20130304
  6. DEPAKIN - 100 MG GRANULATO A RILASCIO MODIFICATO [Suspect]
     Indication: PRODUCT USED FOR UNKNOWN INDICATION
     Dosage: 1 DOSAGE FORMS DAILY;
     Route: 048
     Dates: start: 20130304, end: 20130304
  7. TOLEP - 300 MG COMPRESSE - NOVARTIS FARMA S.P.A. [Suspect]
     Indication: PRODUCT USED FOR UNKNOWN INDICATION
     Dosage: 6 DOSAGE FORMS DAILY;
     Route: 048
     Dates: start: 20130304, end: 20130304
  8. CONTRAMAL - 100 MG/ML SOLUZIONE ORALE CON EROGATORE [Suspect]
     Indication: PRODUCT USED FOR UNKNOWN INDICATION
     Dosage: 30 ML DAILY;
     Dates: start: 20130304, end: 20130304

REACTIONS (1)
  - Coma [Recovered/Resolved]
